FAERS Safety Report 15766586 (Version 1)
Quarter: 2018Q4

REPORT INFORMATION
  Report Type: Report from Study
  Country: IN (occurrence: IN)
  Receive Date: 20181227
  Receipt Date: 20181227
  Transmission Date: 20190205
  Serious: Yes (Other)
  Sender: FDA-Public Use
  Company Number: IN-ALLERGAN-1859144US

PATIENT
  Age: 66 Year
  Sex: Male

DRUGS (1)
  1. BIMATOPROST 0.3MG/ML;TIMOLOL 5MG/ML SOL MD (9374X) [Suspect]
     Active Substance: BIMATOPROST\TIMOLOL MALEATE
     Indication: GLAUCOMA
     Dosage: 1 GTT, QPM
     Route: 047
     Dates: start: 200212, end: 201812

REACTIONS (1)
  - Eye disorder [Unknown]
